FAERS Safety Report 18908796 (Version 3)
Quarter: 2021Q1

REPORT INFORMATION
  Report Type: Report from Study
  Country: MX (occurrence: MX)
  Receive Date: 20210218
  Receipt Date: 20210319
  Transmission Date: 20210420
  Serious: Yes (Death, Hospitalization)
  Sender: FDA-Public Use
  Company Number: NVSC2021MX038476

PATIENT
  Age: 67 Year
  Sex: Male

DRUGS (1)
  1. ENTRESTO [Suspect]
     Active Substance: SACUBITRIL\VALSARTAN
     Indication: CARDIAC DISORDER
     Dosage: 1 DF, BID (EVERY 12 HOURS)
     Route: 048
     Dates: start: 202012, end: 202102

REACTIONS (2)
  - Product use in unapproved indication [Unknown]
  - Renal failure [Fatal]

NARRATIVE: CASE EVENT DATE: 202012
